FAERS Safety Report 14871026 (Version 4)
Quarter: 2018Q4

REPORT INFORMATION
  Report Type: Spontaneous
  Country: US (occurrence: US)
  Receive Date: 20180509
  Receipt Date: 20181119
  Transmission Date: 20190204
  Serious: Yes (Hospitalization, Other)
  Sender: FDA-Public Use
  Company Number: US-GLAXOSMITHKLINE-US2018081798

PATIENT
  Sex: Female

DRUGS (12)
  1. ADVAIR DISKUS [Suspect]
     Active Substance: FLUTICASONE PROPIONATE\SALMETEROL XINAFOATE
     Dosage: 250/50UG
     Route: 055
     Dates: start: 2018
  2. INCRUSE ELLIPTA [Suspect]
     Active Substance: UMECLIDINIUM BROMIDE
     Dosage: UNK
     Route: 055
  3. INCRUSE ELLIPTA [Suspect]
     Active Substance: UMECLIDINIUM BROMIDE
     Indication: CHRONIC OBSTRUCTIVE PULMONARY DISEASE
     Dosage: 1 PUFF(S), QD
     Route: 055
     Dates: start: 20180508
  4. ADVAIR DISKUS [Suspect]
     Active Substance: FLUTICASONE PROPIONATE\SALMETEROL XINAFOATE
     Dosage: 500/50UG
     Route: 055
     Dates: start: 201808
  5. ADVAIR DISKUS [Suspect]
     Active Substance: FLUTICASONE PROPIONATE\SALMETEROL XINAFOATE
     Dosage: 500/50
     Route: 055
     Dates: start: 20180508
  6. ADVAIR DISKUS [Suspect]
     Active Substance: FLUTICASONE PROPIONATE\SALMETEROL XINAFOATE
     Dosage: 250/50UG
     Route: 055
     Dates: start: 2011
  7. LISINOPRIL. [Concomitant]
     Active Substance: LISINOPRIL
  8. ADVAIR DISKUS [Suspect]
     Active Substance: FLUTICASONE PROPIONATE\SALMETEROL XINAFOATE
     Indication: CHRONIC OBSTRUCTIVE PULMONARY DISEASE
     Dosage: 1 PUFF(S), BID
     Route: 055
  9. OXYGEN. [Concomitant]
     Active Substance: OXYGEN
  10. ADVAIR DISKUS [Suspect]
     Active Substance: FLUTICASONE PROPIONATE\SALMETEROL XINAFOATE
     Dosage: UNK
  11. DOXYCYCLINE. [Concomitant]
     Active Substance: DOXYCYCLINE
  12. LASIX [Concomitant]
     Active Substance: FUROSEMIDE

REACTIONS (11)
  - Dyspnoea [Recovering/Resolving]
  - Muscle spasms [Recovered/Resolved]
  - Weight increased [Not Recovered/Not Resolved]
  - Chest pain [Unknown]
  - Influenza [Recovered/Resolved]
  - Infection [Unknown]
  - Pneumonia [Recovered/Resolved]
  - Feeling abnormal [Not Recovered/Not Resolved]
  - Chronic obstructive pulmonary disease [Unknown]
  - Underdose [Unknown]
  - Drug ineffective [Unknown]
